FAERS Safety Report 5271426-1 (Version None)
Quarter: 2007Q1

REPORT INFORMATION
  Report Type: 
  Country: None (occurrence: None)
  Receive Date: 20061214
  Receipt Date: 20051107
  Transmission Date: 20070707
  Serious: Yes (Other)
  Sender: FDA-Public Use
  Company Number: 2005059434

PATIENT
  Sex: Female
  Weight: 48.0813 kg

DRUGS (6)
  1. BEXTRA [Suspect]
     Indication: ARTHRALGIA
     Dosage: 20 MG (20 MG,1 IN 1 D),ORAL
     Route: 048
     Dates: start: 20020101, end: 20040202
  2. BACTRIM [Suspect]
     Indication: INNER EAR DISORDER
     Dates: start: 20030801, end: 20030801
  3. SYNTHROID [Concomitant]
  4. ESTROGENIC SUBSTANCE [Concomitant]
  5. NEURONTIN [Concomitant]
  6. ZANAFLEX [Concomitant]

REACTIONS (31)
  - ABNORMAL FAECES [None]
  - ASTHENIA [None]
  - BRONCHOSPASM [None]
  - BURNING SENSATION [None]
  - CHEST PAIN [None]
  - CHILLS [None]
  - DRY MOUTH [None]
  - DYSPNOEA [None]
  - ERYTHEMA [None]
  - FLUID RETENTION [None]
  - HAEMORRHOIDS [None]
  - HIATUS HERNIA [None]
  - HOT FLUSH [None]
  - HYPERHIDROSIS [None]
  - HYPERSENSITIVITY [None]
  - INFECTION [None]
  - INNER EAR DISORDER [None]
  - MUSCULOSKELETAL STIFFNESS [None]
  - OEDEMA PERIPHERAL [None]
  - PAIN [None]
  - PAIN IN EXTREMITY [None]
  - PALPITATIONS [None]
  - RASH MACULAR [None]
  - SENSATION OF FOREIGN BODY [None]
  - SKIN DISORDER [None]
  - SKIN LESION [None]
  - SWELLING FACE [None]
  - TREMOR [None]
  - TRICHORRHEXIS [None]
  - UNEVALUABLE EVENT [None]
  - WEIGHT DECREASED [None]
